FAERS Safety Report 14684105 (Version 1)
Quarter: 2018Q1

REPORT INFORMATION
  Report Type: Report from Study
  Country: JP (occurrence: JP)
  Receive Date: 20180327
  Receipt Date: 20180327
  Transmission Date: 20180509
  Serious: Yes (Hospitalization)
  Sender: FDA-Public Use
  Company Number: JP-BAYER-2018-059175

PATIENT
  Age: 3 Year
  Sex: Female
  Weight: 10.4 kg

DRUGS (7)
  1. MEROPENEM. [Suspect]
     Active Substance: MEROPENEM
     Dosage: DAILY DOSE 600 MG
     Route: 041
     Dates: start: 20170726, end: 20170929
  2. ELTROMBOPAG OLAMINE [Concomitant]
     Active Substance: ELTROMBOPAG OLAMINE
     Indication: PROPHYLAXIS
     Dosage: DAILY DOSE 12.5 MG
     Route: 048
  3. PROGRAF [Concomitant]
     Active Substance: TACROLIMUS\TACROLIMUS ANHYDROUS
     Indication: PROPHYLAXIS
     Dosage: 2.4-0.2MG,DAILY
     Route: 048
  4. CIPROXAN [Suspect]
     Active Substance: CIPROFLOXACIN
     Indication: ATYPICAL MYCOBACTERIAL INFECTION
     Dosage: DAILY DOSE 110 MG
     Route: 041
     Dates: start: 20170726, end: 20170913
  5. AMIKACIN SULFATE. [Suspect]
     Active Substance: AMIKACIN SULFATE
     Dosage: DAILY DOSE 200 MG
     Dates: start: 20170726, end: 20170929
  6. CLARITH [Suspect]
     Active Substance: CLARITHROMYCIN
     Dosage: DAILY DOSE 160 MG
     Route: 048
     Dates: start: 20170726, end: 20170929
  7. DAIPHEN [Concomitant]
     Active Substance: SULFAMETHOXAZOLE\TRIMETHOPRIM
     Indication: PROPHYLAXIS
     Dosage: DAILY DOSE 0.5 G
     Route: 048

REACTIONS (1)
  - Neutropenia [Recovered/Resolved]

NARRATIVE: CASE EVENT DATE: 20170729
